FAERS Safety Report 4464902-2 (Version None)
Quarter: 2004Q4

REPORT INFORMATION
  Report Type: 
  Country: None (occurrence: None)
  Receive Date: 20041004
  Receipt Date: 20040204
  Transmission Date: 20050328
  Serious: No
  Sender: FDA-Public Use
  Company Number: 361802

PATIENT
  Age: 74 Year
  Sex: Female

DRUGS (7)
  1. COREG [Suspect]
     Dosage: 12.5MG TWICE PER DAY
     Route: 048
     Dates: start: 20030601
  2. LANOXIN [Concomitant]
  3. ZESTRIL [Concomitant]
  4. LEVOXYL [Concomitant]
     Route: 065
  5. COUMADIN [Concomitant]
  6. HORMONE REPLACEMENT THERAPY [Concomitant]
  7. LASIX [Concomitant]

REACTIONS (2)
  - FATIGUE [None]
  - HYPOTENSION [None]
